FAERS Safety Report 10068663 (Version 3)
Quarter: 2014Q3

REPORT INFORMATION
  Report Type: Spontaneous
  Country: AU (occurrence: AU)
  Receive Date: 20140409
  Receipt Date: 20140711
  Transmission Date: 20150326
  Serious: Yes (Life-Threatening, Hospitalization)
  Sender: FDA-Public Use
  Company Number: AU-PFIZER INC-2014095696

PATIENT
  Age: 34 Year
  Sex: Female

DRUGS (3)
  1. QUETIAPINE FUMARATE. [Suspect]
     Active Substance: QUETIAPINE FUMARATE
     Dosage: 400 MG, DAILY
  2. PRISTIQ EXTENDED RELEASE [Suspect]
     Active Substance: DESVENLAFAXINE SUCCINATE
     Dosage: UNK
  3. ELEVIT RDI [Concomitant]
     Dosage: UNK

REACTIONS (2)
  - Postpartum haemorrhage [Recovered/Resolved]
  - Abnormal labour [Recovered/Resolved]

NARRATIVE: CASE EVENT DATE: 20120312
